FAERS Safety Report 9858824 (Version 1)
Quarter: 2014Q1

REPORT INFORMATION
  Report Type: Spontaneous
  Country: US (occurrence: None)
  Receive Date: 20140113
  Receipt Date: 20140113
  Transmission Date: 20141002
  Serious: Yes (Other)
  Sender: FDA-Public Use
  Company Number: 44124

PATIENT
  Age: 83 Year
  Sex: Male
  Weight: 79.38 kg

DRUGS (7)
  1. GLASSIA [Suspect]
     Indication: ALPHA-1 ANTI-TRYPSIN DEFICIENCY
     Route: 042
     Dates: start: 201210
  2. NAPROXEN [Concomitant]
  3. RANITIDINE [Concomitant]
  4. GLIPIZIDE [Concomitant]
  5. IRON PILL [Concomitant]
  6. SIMIVASTATIN [Concomitant]
  7. LOSARTAN [Concomitant]

REACTIONS (5)
  - Bronchitis [None]
  - Prostate cancer [None]
  - Weight increased [None]
  - Arthropathy [None]
  - Decreased activity [None]
